FAERS Safety Report 13088898 (Version 1)
Quarter: 2016Q4

REPORT INFORMATION
  Report Type: Spontaneous
  Country: US (occurrence: US)
  Receive Date: 20161231
  Receipt Date: 20161231
  Transmission Date: 20170207
  Serious: No
  Sender: FDA-Public Use
  Company Number: None

PATIENT
  Age: 64 Year
  Sex: Male
  Weight: 96.7 kg

DRUGS (5)
  1. FISH OIL [Concomitant]
     Active Substance: FISH OIL
  2. MULTI VITAMIN [Concomitant]
     Active Substance: VITAMINS
  3. ATORVASTATIN [Suspect]
     Active Substance: ATORVASTATIN
     Indication: BLOOD CHOLESTEROL INCREASED
     Dosage: QUANTITY:1 TABLET(S); AT BEDTIME; ORAL?
     Route: 048
     Dates: start: 20161002, end: 20161225
  4. BENAZEPRIL [Concomitant]
     Active Substance: BENAZEPRIL HYDROCHLORIDE
  5. SPECTRAVITE [Concomitant]

REACTIONS (3)
  - Muscle disorder [None]
  - Memory impairment [None]
  - Confusional state [None]

NARRATIVE: CASE EVENT DATE: 20161025
